FAERS Safety Report 13158903 (Version 1)
Quarter: 2017Q1

REPORT INFORMATION
  Report Type: Spontaneous
  Country: IT (occurrence: IT)
  Receive Date: 20170127
  Receipt Date: 20170127
  Transmission Date: 20170428
  Serious: Yes (Hospitalization)
  Sender: FDA-Public Use
  Company Number: IT-BAYER-2017-016635

PATIENT
  Age: 83 Year
  Sex: Female

DRUGS (1)
  1. CARDIOASPIRIN 100 MG [Suspect]
     Active Substance: ASPIRIN
     Indication: DEEP VEIN THROMBOSIS
     Dosage: 100 MG, QD
     Route: 048
     Dates: start: 20160101, end: 20161211

REACTIONS (3)
  - Melaena [Unknown]
  - Asthenia [Unknown]
  - Haemorrhagic anaemia [Unknown]

NARRATIVE: CASE EVENT DATE: 20161211
